FAERS Safety Report 20884007 (Version 1)
Quarter: 2022Q2

REPORT INFORMATION
  Report Type: Spontaneous
  Country: LT (occurrence: LT)
  Receive Date: 20220527
  Receipt Date: 20220527
  Transmission Date: 20220721
  Serious: Yes (Hospitalization)
  Sender: FDA-Public Use
  Company Number: None

PATIENT
  Age: 50 Year
  Sex: Female
  Weight: 50 kg

DRUGS (9)
  1. BISACODYL [Suspect]
     Active Substance: BISACODYL
     Indication: Product used for unknown indication
     Dosage: 15 UNITS,STRENGTH5MG,UNIT DOSE: 75MG
     Route: 065
     Dates: start: 20220422, end: 20220422
  2. PREGABALIN [Suspect]
     Active Substance: PREGABALIN
     Indication: Product used for unknown indication
     Dosage: 9 UNITS, STRENGTH 75MG, UNIT DOSE 675MG
     Route: 065
     Dates: start: 20220422, end: 20220422
  3. QUETIAPINE [Interacting]
     Active Substance: QUETIAPINE
     Indication: Product used for unknown indication
     Dosage: 7 UNITS, STRENGTH 200MG, UNIT DOSE: 1400MG
     Route: 065
     Dates: start: 20220422, end: 20220422
  4. METOPROLOL [Interacting]
     Active Substance: METOPROLOL
     Indication: Product used for unknown indication
     Dosage: 4 UNITS, STRENGTH 95MG, UNIT DOSE 380MG
     Route: 065
     Dates: start: 20220422, end: 20220422
  5. CLONAZEPAM [Interacting]
     Active Substance: CLONAZEPAM
     Indication: Product used for unknown indication
     Dosage: 10 UNITS, STRENGTH 2MG, UNIT DOSE: 20MG
     Route: 065
     Dates: start: 20220422, end: 20220422
  6. ALCOHOL [Interacting]
     Active Substance: ALCOHOL
     Indication: Product used for unknown indication
     Dosage: UNKNOWN AMOUNT
     Route: 048
     Dates: start: 20220422, end: 20220422
  7. DIAZEPAM [Interacting]
     Active Substance: DIAZEPAM
     Indication: Insomnia
     Dosage: 27 TABLETS, STRENGTH 5MG, UNIT DOSE 135MG, FREQUENCY TIME 1TOTAL
     Route: 048
     Dates: start: 20220422, end: 20220422
  8. DIAZEPAM [Interacting]
     Active Substance: DIAZEPAM
     Indication: Anxiety
  9. ITOPRIDE HYDROCHLORIDE [Interacting]
     Active Substance: ITOPRIDE HYDROCHLORIDE
     Indication: Product used for unknown indication
     Dosage: 3 UNITS, STRENGTH 5MG, UNIT DOSE 150MG
     Route: 065
     Dates: start: 20220422, end: 20220422

REACTIONS (8)
  - Suicide attempt [Recovered/Resolved]
  - Blood pressure decreased [Recovered/Resolved]
  - Intentional overdose [Recovered/Resolved]
  - Alcohol interaction [Recovered/Resolved]
  - Off label use [Recovered/Resolved]
  - Drug interaction [Recovered/Resolved]
  - Sluggishness [Recovered/Resolved]
  - Medication error [Recovered/Resolved]

NARRATIVE: CASE EVENT DATE: 20220422
